FAERS Safety Report 23307194 (Version 1)
Quarter: 2023Q4

REPORT INFORMATION
  Report Type: Spontaneous
  Country: US (occurrence: US)
  Receive Date: 20231218
  Receipt Date: 20231218
  Transmission Date: 20240110
  Serious: No
  Sender: FDA-Public Use
  Company Number: US-RECKITT BENCKISER HEALTHCARE INT LIMITED-RB-103771-2023

PATIENT
  Age: 4 Year
  Sex: Male

DRUGS (1)
  1. DELSYM [Suspect]
     Active Substance: DEXTROMETHORPHAN
     Indication: Cough
     Dosage: UNKNOWN
     Route: 048
     Dates: start: 20230611, end: 20230619

REACTIONS (10)
  - Decreased appetite [Not Recovered/Not Resolved]
  - Somnolence [Not Recovered/Not Resolved]
  - Fatigue [Recovered/Resolved]
  - Cough [Not Recovered/Not Resolved]
  - Rash [Not Recovered/Not Resolved]
  - Decreased appetite [Recovered/Resolved]
  - Pollakiuria [Not Recovered/Not Resolved]
  - Nausea [Recovered/Resolved]
  - Incorrect dose administered [Unknown]
  - Urticaria [Not Recovered/Not Resolved]
